FAERS Safety Report 4289495-4 (Version None)
Quarter: 2004Q1

REPORT INFORMATION
  Report Type: 
  Country: None (occurrence: None)
  Receive Date: 20040205
  Receipt Date: 20040122
  Transmission Date: 20041129
  Serious: Yes (Hospitalization, Disabling)
  Sender: FDA-Public Use
  Company Number: 2003CG01782

PATIENT
  Age: 48 Year
  Sex: Female
  Weight: 58 kg

DRUGS (20)
  1. MARCAINE [Suspect]
     Indication: LOCAL ANAESTHESIA
     Dosage: 10 MG ONCE IT
     Route: 037
     Dates: start: 20031117, end: 20031117
  2. NAROPIN [Suspect]
     Indication: LOCAL ANAESTHESIA
     Dosage: 2 ML ONCE SQ
     Route: 058
     Dates: start: 20031117, end: 20031117
  3. NAROPIN [Suspect]
     Indication: POSTOPERATIVE ANALGESIA
     Dosage: 2 ML ONCE SQ
     Route: 058
     Dates: start: 20031117, end: 20031117
  4. NAROPIN [Suspect]
     Indication: LOCAL ANAESTHESIA
     Dosage: 2 ML ONCE ED
     Route: 008
     Dates: start: 20031117, end: 20031117
  5. NAROPIN [Suspect]
     Indication: POSTOPERATIVE ANALGESIA
     Dosage: 2 ML ONCE ED
     Route: 008
     Dates: start: 20031117, end: 20031117
  6. NAROPIN [Suspect]
     Indication: LOCAL ANAESTHESIA
     Dosage: 6 TO 12 ML/H
     Dates: start: 20031117, end: 20031119
  7. NAROPIN [Suspect]
     Indication: POSTOPERATIVE ANALGESIA
     Dosage: 6 TO 12 ML/H
     Dates: start: 20031117, end: 20031119
  8. HYPNOVEL [Suspect]
     Dosage: 2 MG DAILY IV
     Route: 042
     Dates: start: 20031117, end: 20031117
  9. SUFENTA [Suspect]
     Indication: LOCAL ANAESTHESIA
     Dosage: 3 UG ONCE IT
     Route: 037
     Dates: start: 20031117, end: 20031117
  10. SUFENTA [Suspect]
     Indication: POSTOPERATIVE ANALGESIA
     Dosage: 3 UG ONCE IT
     Route: 037
     Dates: start: 20031117, end: 20031117
  11. SUFENTA [Suspect]
     Indication: LOCAL ANAESTHESIA
     Dosage: 15 UG ONCE ED
     Route: 008
     Dates: start: 20031117, end: 20031118
  12. SUFENTA [Suspect]
     Indication: POSTOPERATIVE ANALGESIA
     Dosage: 15 UG ONCE ED
     Route: 008
     Dates: start: 20031117, end: 20031118
  13. PERFALGAN [Suspect]
     Dosage: 1 G IV
     Route: 042
     Dates: start: 20031117, end: 20031119
  14. LUTENYL [Concomitant]
  15. ROHYPNOL [Concomitant]
  16. XYLOCAINE W/ EPINEPHRINE [Concomitant]
  17. NUBAIN [Concomitant]
  18. NOROXIN [Concomitant]
  19. LOVENOX [Concomitant]
  20. CEFAZOLIN [Concomitant]

REACTIONS (9)
  - ANAESTHETIC COMPLICATION [None]
  - BLOOD PRESSURE SYSTOLIC DECREASED [None]
  - CAUDA EQUINA SYNDROME [None]
  - DRUG TOXICITY [None]
  - HYPERSENSITIVITY [None]
  - MALAISE [None]
  - NERVOUS SYSTEM DISORDER [None]
  - SUBARACHNOID HAEMORRHAGE [None]
  - VAGINAL HAEMATOMA [None]
